FAERS Safety Report 13959526 (Version 1)
Quarter: 2017Q3

REPORT INFORMATION
  Report Type: Spontaneous
  Country: US (occurrence: None)
  Receive Date: 20170912
  Receipt Date: 20170912
  Transmission Date: 20171128
  Serious: Yes (Death, Hospitalization)
  Sender: FDA-Public Use
  Company Number: None

PATIENT
  Age: 2 Year
  Sex: Female
  Weight: 10.2 kg

DRUGS (4)
  1. DOXORUBICIN HYDROCHLORIDE. [Suspect]
     Active Substance: DOXORUBICIN HYDROCHLORIDE
     Dates: end: 20131007
  2. VINCRISTINE SULFATE. [Suspect]
     Active Substance: VINCRISTINE SULFATE
     Dates: end: 20131007
  3. DEXAMETHASONE. [Suspect]
     Active Substance: DEXAMETHASONE
     Dates: end: 20131013
  4. ONCASPAR [Suspect]
     Active Substance: PEGASPARGASE
     Dates: end: 20130926

REACTIONS (13)
  - Unresponsive to stimuli [None]
  - Histiocytosis haematophagic [None]
  - Lactic acidosis [None]
  - Pulmonary oedema [None]
  - Pneumonia [None]
  - Tachycardia [None]
  - Pulseless electrical activity [None]
  - Apnoea [None]
  - Meningitis candida [None]
  - Haemorrhage [None]
  - Pancytopenia [None]
  - Cardiac arrest [None]
  - Parainfluenzae virus infection [None]

NARRATIVE: CASE EVENT DATE: 20131014
